FAERS Safety Report 4436571-9 (Version None)
Quarter: 2004Q3

REPORT INFORMATION
  Report Type: 
  Country: None (occurrence: None)
  Receive Date: 20040830
  Receipt Date: 20040629
  Transmission Date: 20050211
  Serious: No
  Sender: FDA-Public Use
  Company Number: US-BRISTOL-MYERS SQUIBB COMPANY-12628236

PATIENT
  Sex: Female

DRUGS (3)
  1. ABILIFY [Suspect]
     Indication: TIC
     Route: 048
     Dates: start: 20040617
  2. VOLTAREN [Concomitant]
  3. RISPERDAL [Concomitant]

REACTIONS (1)
  - INSOMNIA [None]
